FAERS Safety Report 9756483 (Version 1)
Quarter: 2013Q4

REPORT INFORMATION
  Report Type: Spontaneous
  Country: US (occurrence: US)
  Receive Date: 20131213
  Receipt Date: 20131213
  Transmission Date: 20140711
  Serious: No
  Sender: FDA-Public Use
  Company Number: US-GLAXOSMITHKLINE-A1042826A

PATIENT
  Age: 42 Year
  Sex: Female

DRUGS (5)
  1. EQUATE NTS 21MG, CLEAR [Suspect]
     Indication: EX-TOBACCO USER
     Route: 062
     Dates: start: 20130910, end: 20130923
  2. PLAVIX [Concomitant]
  3. LISINOPRIL [Concomitant]
  4. LABETALOL [Concomitant]
  5. LIPITOR [Concomitant]

REACTIONS (1)
  - Nightmare [Unknown]
